FAERS Safety Report 5837792-0 (Version None)
Quarter: 2008Q3

REPORT INFORMATION
  Report Type: 
  Country: None (occurrence: None)
  Receive Date: 20080806
  Receipt Date: 20080724
  Transmission Date: 20090109
  Serious: Yes (Hospitalization)
  Sender: FDA-Public Use
  Company Number: US017845

PATIENT
  Age: 46 Year
  Sex: Male
  Weight: 88.905 kg

DRUGS (3)
  1. ACTIQ [Suspect]
     Indication: PAIN
     Dosage: 800 UG 3-4 DAILY BUCCAL
     Route: 002
     Dates: start: 19980101, end: 20060301
  2. ACTIQ [Suspect]
     Indication: PEMPHIGOID
     Dosage: 800 UG 3-4 DAILY BUCCAL
     Route: 002
     Dates: start: 19980101, end: 20060301
  3. OXYCONTIN [Concomitant]

REACTIONS (15)
  - APHTHOUS STOMATITIS [None]
  - AUTOIMMUNE DISORDER [None]
  - BONE DISORDER [None]
  - CHEST PAIN [None]
  - DENTAL CARIES [None]
  - EATING DISORDER [None]
  - GINGIVAL PAIN [None]
  - HYPOPHAGIA [None]
  - MASTICATION DISORDER [None]
  - ORAL INFECTION [None]
  - ORAL PAIN [None]
  - SPEECH DISORDER [None]
  - TOOTH DISORDER [None]
  - TOOTH LOSS [None]
  - TOOTHACHE [None]
